FAERS Safety Report 9274941 (Version 3)
Quarter: 2013Q2

REPORT INFORMATION
  Report Type: Spontaneous
  Country: FR (occurrence: None)
  Receive Date: 20130429
  Receipt Date: 20130515
  Transmission Date: 20140414
  Serious: Yes (Hospitalization, Other)
  Sender: FDA-Public Use
  Company Number: AUR-APL-2013-03301

PATIENT
  Age: 92 Year
  Sex: Female

DRUGS (13)
  1. PERINDOPRIL [Suspect]
     Indication: HYPERTENSION
     Dosage: 1MG,1 D., ORAL.
     Route: 048
  2. CORDARONE [Suspect]
     Indication: ATRIAL FIBRILLATION
     Dosage: 400 MG (200 MG,2 IN 1 D)
     Route: 048
     Dates: start: 20130111
  3. AUGMENTIN [Suspect]
     Indication: BRONCHITIS
     Route: 048
     Dates: start: 20130111, end: 20130119
  4. PREVISCAN [Suspect]
     Indication: ATRIAL FIBRILLATION
     Route: 048
     Dates: start: 20130111
  5. ROCEPHINE [Suspect]
     Indication: BRONCHITIS
     Route: 042
     Dates: start: 20130111, end: 20130119
  6. IMOVANE (ZOPICLONE) [Concomitant]
  7. ATROVENT (IPRATROPIUM BROMIDE) [Concomitant]
  8. TEMESTA (LORAZEPAM) [Concomitant]
  9. LEVOTHYROX (LEVOTHYROXINE SODIUM) [Concomitant]
  10. ATENOLOL (ATENOLOL) [Concomitant]
  11. DAFALGAN (PARACETAMOL) [Concomitant]
  12. SERESTA (OXAZEPAM) [Concomitant]
  13. COVERSYL (PERINDOPRIL) [Concomitant]

REACTIONS (11)
  - Renal failure [None]
  - Hyperkalaemia [None]
  - Diarrhoea [None]
  - Bronchitis [None]
  - Dyspnoea [None]
  - International normalised ratio increased [None]
  - Aspartate aminotransferase increased [None]
  - Alanine aminotransferase increased [None]
  - Hyperglycaemia [None]
  - Hepatocellular injury [None]
  - Atrial fibrillation [None]
